FAERS Safety Report 4817903-6 (Version None)
Quarter: 2005Q3

REPORT INFORMATION
  Report Type: 
  Country: None (occurrence: None)
  Receive Date: 20050929
  Receipt Date: 20050707
  Transmission Date: 20060218
  Serious: No
  Sender: FDA-Public Use
  Company Number: 05P-163-0304998-00

PATIENT
  Age: 41 Year
  Sex: Female
  Weight: 95 kg

DRUGS (11)
  1. HUMIRA [Suspect]
     Indication: RHEUMATOID ARTHRITIS
     Dosage: 40 MG, 1 IN 2 WK, SUBCUTANEOUS
     Route: 058
     Dates: start: 20050616
  2. ESOMEPRAZOLE [Concomitant]
  3. LEVOTHYROXINE SODIUM [Concomitant]
  4. METHADONE [Concomitant]
  5. FUROSEMIDE [Concomitant]
  6. ORLISTAT [Concomitant]
  7. ZOCOR [Concomitant]
  8. ALPRAZOLAM [Concomitant]
  9. METOCLOPRAMIDE [Concomitant]
  10. MULTI-VITAMINS [Concomitant]
  11. IBUPROFEN [Concomitant]

REACTIONS (3)
  - INCREASED APPETITE [None]
  - INJECTION SITE PAIN [None]
  - OEDEMA PERIPHERAL [None]
